FAERS Safety Report 9656740 (Version 1)
Quarter: 2013Q4

REPORT INFORMATION
  Report Type: Spontaneous
  Country: IT (occurrence: IT)
  Receive Date: 20131030
  Receipt Date: 20131030
  Transmission Date: 20140711
  Serious: Yes (Hospitalization)
  Sender: FDA-Public Use
  Company Number: IT-TEVA-440035ISR

PATIENT
  Age: 18 Year
  Sex: Female

DRUGS (6)
  1. KETOPROFENE [Suspect]
     Dosage: 3 DOSAGE FORMS DAILY;
     Route: 048
     Dates: start: 20131014, end: 20131014
  2. ITRACONAZOLO [Suspect]
     Dosage: 400 MILLIGRAM DAILY;
     Route: 048
     Dates: start: 20131014, end: 20131014
  3. CONTRAMAL [Suspect]
     Dosage: 30 ML DAILY;
     Route: 048
     Dates: start: 20131014, end: 20131014
  4. OKI 80 MG [Suspect]
     Dosage: 1 DOSAGE FORMS DAILY;
     Route: 048
     Dates: start: 20131014, end: 20131014
  5. HEDERIX PLAN 0.6 G/30 ML+4.5 G/30ML [Suspect]
     Dosage: 7.5 ML DAILY;
     Route: 048
     Dates: start: 20131014, end: 20131014
  6. SERACTIL 200 MG [Suspect]
     Dosage: 400 MILLIGRAM DAILY;
     Route: 048
     Dates: start: 20131014, end: 20131014

REACTIONS (3)
  - Hypoxia [Recovering/Resolving]
  - Drug abuse [Recovering/Resolving]
  - Somnolence [Recovering/Resolving]
